FAERS Safety Report 9857167 (Version 2)
Quarter: 2014Q1

REPORT INFORMATION
  Report Type: Spontaneous
  Country: US (occurrence: US)
  Receive Date: 20140130
  Receipt Date: 20140326
  Transmission Date: 20141002
  Serious: No
  Sender: FDA-Public Use
  Company Number: US-009507513-1401USA007696

PATIENT
  Age: 71 Year
  Sex: Female
  Weight: 67.12 kg

DRUGS (2)
  1. MIRALAX [Suspect]
     Indication: COLITIS
     Dosage: UNK, UNKNOWN
     Route: 048
  2. MIRALAX [Suspect]
     Dosage: UNK

REACTIONS (3)
  - Off label use [Unknown]
  - Incorrect drug administration duration [Unknown]
  - Product container seal issue [Unknown]
